FAERS Safety Report 7319575-8 (Version None)
Quarter: 2011Q1

REPORT INFORMATION
  Report Type: 
  Country: None (occurrence: None)
  Receive Date: 20110228
  Receipt Date: 20100527
  Transmission Date: 20110831
  Serious: No
  Sender: FDA-Public Use
  Company Number: A0861717A

PATIENT
  Age: 43 Year
  Sex: Female

DRUGS (11)
  1. LITHIUM [Concomitant]
  2. LEVORA 0.15/30-21 [Concomitant]
  3. BLINDED TRIAL MEDICATION [Concomitant]
  4. DEPAKOTE [Concomitant]
     Dates: end: 20100501
  5. LAMICTAL [Suspect]
     Indication: BIPOLAR DISORDER
     Dosage: 200MG PER DAY
     Route: 048
     Dates: start: 20070101
  6. BENADRYL [Concomitant]
  7. LEVOTHYROXINE SODIUM [Concomitant]
  8. OMEPRAZOLE [Concomitant]
  9. CLARITIN [Concomitant]
  10. SOAP [Concomitant]
  11. SEROQUEL [Concomitant]

REACTIONS (4)
  - INSOMNIA [None]
  - RASH [None]
  - PRURITUS [None]
  - SKIN BURNING SENSATION [None]
